FAERS Safety Report 9874877 (Version 1)
Quarter: 2014Q1

REPORT INFORMATION
  Report Type: Spontaneous
  Country: US (occurrence: None)
  Receive Date: 20140205
  Receipt Date: 20140205
  Transmission Date: 20141002
  Serious: Yes (Life-Threatening, Other)
  Sender: FDA-Public Use
  Company Number: None

PATIENT
  Age: 52 Year
  Sex: Female
  Weight: 49.9 kg

DRUGS (1)
  1. HYDROCORTISONE [Suspect]
     Indication: ADDISON^S DISEASE
     Route: 048

REACTIONS (7)
  - Fatigue [None]
  - Migraine [None]
  - Loss of consciousness [None]
  - Road traffic accident [None]
  - Drug ineffective [None]
  - Feeling abnormal [None]
  - Adrenocortical insufficiency acute [None]
